FAERS Safety Report 14543173 (Version 1)
Quarter: 2018Q1

REPORT INFORMATION
  Report Type: Spontaneous
  Country: US (occurrence: US)
  Receive Date: 20180216
  Receipt Date: 20180216
  Transmission Date: 20180509
  Serious: No
  Sender: FDA-Public Use
  Company Number: US-BAYER-2018-032373

PATIENT
  Sex: Female

DRUGS (5)
  1. MIRENA [Suspect]
     Active Substance: LEVONORGESTREL
     Indication: MENORRHAGIA
     Dosage: 20 MCG/24HR, CONT
     Route: 015
     Dates: start: 20150805
  2. MIRENA [Suspect]
     Active Substance: LEVONORGESTREL
     Indication: MENORRHAGIA
  3. MOTRIN [Concomitant]
     Active Substance: IBUPROFEN
  4. DICLOFENAC [Concomitant]
     Active Substance: DICLOFENAC
  5. TYLENOL WITH CODEINE [Concomitant]
     Active Substance: ACETAMINOPHEN\CODEINE PHOSPHATE

REACTIONS (11)
  - Headache [None]
  - Feeling abnormal [None]
  - Medical device discomfort [None]
  - Hot flush [None]
  - Paraesthesia [None]
  - Abdominal pain lower [None]
  - Emotional disorder [None]
  - Back pain [None]
  - Abdominal discomfort [None]
  - Pelvic pain [Not Recovered/Not Resolved]
  - Dizziness [None]
